FAERS Safety Report 4665137-0 (Version None)
Quarter: 2005Q2

REPORT INFORMATION
  Report Type: 
  Country: None (occurrence: None)
  Receive Date: 20050517
  Receipt Date: 20050504
  Transmission Date: 20051028
  Serious: Yes (Other)
  Sender: FDA-Public Use
  Company Number: 2005070694

PATIENT
  Age: 70 Year
  Sex: Female
  Weight: 91.6 kg

DRUGS (1)
  1. GENOTROPIN [Suspect]
     Indication: HYPOPITUITARISM
     Dosage: 0.3 MG (0.3 MG, DAILY), SUBCUTANEOUS
     Route: 058
     Dates: start: 20030204, end: 20050429

REACTIONS (2)
  - RECTAL HAEMORRHAGE [None]
  - WEIGHT DECREASED [None]
